FAERS Safety Report 8576107-4 (Version None)
Quarter: 2012Q2

REPORT INFORMATION
  Report Type: 
  Country: None (occurrence: None)
  Receive Date: 20120423
  Receipt Date: 20100917
  Transmission Date: 20120825
  Serious: Yes (Hospitalization)
  Sender: FDA-Public Use
  Company Number: PHHY2010US62164

PATIENT
  Sex: Female
  Weight: 84.8 kg

DRUGS (15)
  1. PERCOCET [Concomitant]
  2. METHADONE HYDROCHLORIDE [Concomitant]
  3. HYDROXYUREA [Concomitant]
  4. DULCOLAX [Concomitant]
  5. ZOCOR [Concomitant]
  6. SENOKOT (SENNA ALEXANDRINA FRUIT) [Concomitant]
  7. FAMOTIDINE [Concomitant]
  8. LISINOPRIL [Concomitant]
  9. LANOXIN [Concomitant]
  10. FOLIC ACID [Concomitant]
  11. NEURONTIN [Concomitant]
  12. LEXAPRO [Concomitant]
  13. DETROL [Concomitant]
  14. EXJADE [Suspect]
     Indication: SICKLE CELL ANAEMIA
     Dosage: 813 MG, DAILY, ORAL
     Route: 048
     Dates: start: 20100729
  15. ASPIRIN [Concomitant]

REACTIONS (1)
  - SICKLE CELL ANAEMIA WITH CRISIS [None]
